FAERS Safety Report 8308760-4 (Version None)
Quarter: 2012Q2

REPORT INFORMATION
  Report Type: 
  Country: None (occurrence: None)
  Receive Date: 20120424
  Receipt Date: 20120417
  Transmission Date: 20120825
  Serious: Yes (Other)
  Sender: FDA-Public Use
  Company Number: JP-PFIZER INC-2012080026

PATIENT
  Age: 74 Year
  Sex: Female
  Weight: 62 kg

DRUGS (13)
  1. HICALIQ [Concomitant]
     Dosage: 250 ML, 2X/DAY
     Route: 042
     Dates: start: 20110421
  2. LASIX [Concomitant]
     Dosage: 40 MG, 1X/DAY
     Route: 048
  3. CALCIUM POLYSTYRENE SULFONATE [Concomitant]
     Dosage: 1 DF, 3X/DAY
     Route: 048
     Dates: start: 20111224
  4. AMINOLEBAN [Concomitant]
     Dosage: 500 ML, 1X/DAY
     Route: 042
     Dates: start: 20110416
  5. LANSOPRAZOLE [Concomitant]
     Dosage: 15 MG, 1X/DAY
     Route: 048
  6. ZYVOX [Suspect]
     Indication: PNEUMONIA STAPHYLOCOCCAL
     Dosage: 600 MG, 1X/DAY
     Route: 041
     Dates: start: 20120327, end: 20120327
  7. GLAKAY [Concomitant]
     Dosage: 15 MG, 3X/DAY
     Route: 048
  8. ALDACTONE [Concomitant]
     Dosage: 25 MG, 2X/DAY
     Route: 048
     Dates: start: 20110607
  9. ALLOID [Concomitant]
     Dosage: 10 ML, 4X/DAY
     Route: 048
     Dates: start: 20110710
  10. ZYVOX [Suspect]
     Dosage: 600 MG, 2X/DAY
     Route: 041
     Dates: start: 20120328, end: 20120328
  11. ZYVOX [Suspect]
     Dosage: 600 MG, 1X/DAY
     Route: 041
     Dates: start: 20120329, end: 20120329
  12. VITAJECT [Concomitant]
     Dosage: 1 SET, 1X/DAY
     Route: 042
     Dates: start: 20110421
  13. PROMAC /JPN/ [Suspect]
     Dosage: 75 MG, 2X/DAY
     Route: 048
     Dates: start: 20110628

REACTIONS (2)
  - LOSS OF CONSCIOUSNESS [None]
  - HYPOAESTHESIA [None]
